FAERS Safety Report 8915390 (Version 1)
Quarter: 2012Q4

REPORT INFORMATION
  Report Type: 
  Country: US (occurrence: US)
  Receive Date: 20121119
  Receipt Date: 20121119
  Transmission Date: 20130627
  Serious: No
  Sender: FDA-Public Use
  Company Number: US-PFIZER INC-2012288062

PATIENT
  Age: 43 Year
  Sex: Male

DRUGS (3)
  1. CHANTIX [Suspect]
     Indication: SMOKING CESSATION THERAPY
     Dosage: UNK
     Dates: start: 2010
  2. CHANTIX [Suspect]
     Dosage: UNK
     Dates: start: 2011
  3. PREVACID [Concomitant]
     Indication: ACID REFLUX (ESOPHAGEAL)
     Dosage: 20 mg, daily

REACTIONS (2)
  - Weight increased [Unknown]
  - Dysgeusia [Unknown]
